FAERS Safety Report 8965506 (Version 4)
Quarter: 2013Q1

REPORT INFORMATION
  Report Type: Spontaneous
  Country: US (occurrence: None)
  Receive Date: 20121205
  Receipt Date: 20130115
  Transmission Date: 20140127
  Serious: Yes (Death, Hospitalization)
  Sender: FDA-Public Use
  Company Number: 2012-1419

PATIENT
  Age: 49 Year
  Sex: Male

DRUGS (7)
  1. KYPROLIS [Suspect]
     Indication: PLASMA CELL MYELOMA
     Dosage: (30.8 MG, DAYS 1, 2, 8, 9, 15, 16 EVERY 28 DAYS)
     Route: 042
     Dates: start: 20120908, end: 20120916
  2. KYPROLIS [Suspect]
     Dosage: (30.8 MG, DAYS 1, 2, 8, 9, 15, 16 EVERY 28 DAYS)
     Route: 042
     Dates: start: 20120908, end: 20120916
  3. LOVENOX (ENOXAPARIN SODIUM) (ENOXAPARIN SODIUM) [Concomitant]
  4. LOPRESSOR (METOPROLOL TARTRATE) (METOPROLOL TARTRATE) [Concomitant]
  5. MAGNESIUM (MAGNESIUM) (MAGNESIUM) [Concomitant]
  6. POTASSIUM (POTASSIUM) (POTASSIUM) [Concomitant]
  7. IRON DEXTRAN COMPLEX (IRON DEXTRANE) (50 MILLIGRAM/MILLILITERS) (IRON DEXTRAN) [Concomitant]

REACTIONS (8)
  - Blood potassium decreased [None]
  - Anaemia [None]
  - Thrombocytopenia [None]
  - Mitral valve replacement [None]
  - Aortic valve replacement [None]
  - Cardiac failure [None]
  - Plasma cell myeloma [None]
  - Myocardial infarction [None]
